FAERS Safety Report 17181284 (Version 1)
Quarter: 2019Q4

REPORT INFORMATION
  Report Type: Spontaneous
  Country: US (occurrence: US)
  Receive Date: 20191220
  Receipt Date: 20191220
  Transmission Date: 20200122
  Serious: Yes (Other)
  Sender: FDA-Public Use
  Company Number: US-BIOGEN-2019BI00817334

PATIENT
  Sex: Female

DRUGS (2)
  1. TYSABRI [Suspect]
     Active Substance: NATALIZUMAB
     Indication: EXPOSURE VIA PARTNER
     Route: 065
     Dates: start: 201401, end: 201503
  2. TYSABRI [Suspect]
     Active Substance: NATALIZUMAB
     Route: 065
     Dates: start: 201911

REACTIONS (2)
  - Anembryonic gestation [Recovered/Resolved]
  - Paternal exposure before pregnancy [Recovered/Resolved]
